FAERS Safety Report 10256553 (Version 1)
Quarter: 2014Q2

REPORT INFORMATION
  Report Type: Report from Study
  Country: BR (occurrence: BR)
  Receive Date: 20140624
  Receipt Date: 20140624
  Transmission Date: 20141212
  Serious: Yes (Death, Hospitalization)
  Sender: FDA-Public Use
  Company Number: BR-ABBVIE-14P-020-1249944-00

PATIENT
  Age: 65 Year
  Sex: Female

DRUGS (3)
  1. HUMIRA [Suspect]
     Indication: PSORIASIS
     Route: 058
  2. UNSPECIFIED MEDICATION [Concomitant]
     Indication: DEPRESSION
  3. UNSPECIFIED MEDICATION [Concomitant]
     Indication: PAIN

REACTIONS (13)
  - Purulent pericarditis [Fatal]
  - Renal failure [Fatal]
  - Sepsis [Fatal]
  - Multi-organ failure [Fatal]
  - Bacterial infection [Fatal]
  - Psoriasis [Fatal]
  - Immunosuppression [Fatal]
  - Tongue discolouration [Unknown]
  - Cough [Recovered/Resolved]
  - Pyrexia [Recovered/Resolved]
  - Back pain [Unknown]
  - Oral mucosal discolouration [Unknown]
  - Skin discolouration [Unknown]
